APPROVED DRUG PRODUCT: NAPROXEN SODIUM
Active Ingredient: NAPROXEN SODIUM
Strength: 220MG
Dosage Form/Route: TABLET;ORAL
Application: A091353 | Product #001
Applicant: GRANULES INDIA LTD
Approved: Sep 20, 2011 | RLD: No | RS: No | Type: OTC